FAERS Safety Report 14696284 (Version 1)
Quarter: 2018Q1

REPORT INFORMATION
  Report Type: Spontaneous
  Country: CA (occurrence: CA)
  Receive Date: 20180329
  Receipt Date: 20180329
  Transmission Date: 20180509
  Serious: Yes (Hospitalization)
  Sender: FDA-Public Use
  Company Number: CA-TEVA-2018-CA-874720

PATIENT
  Age: 4 Year
  Sex: Female
  Weight: 19 kg

DRUGS (2)
  1. DEXAMETHASONE. [Suspect]
     Active Substance: DEXAMETHASONE
     Indication: CROUP INFECTIOUS
     Dosage: FREQUENCY: ONCE
     Route: 048
  2. DEXAMETHASONE. [Suspect]
     Active Substance: DEXAMETHASONE
     Indication: ASTHMA

REACTIONS (5)
  - Urine ketone body present [Recovered/Resolved]
  - Hyperglycaemia [Recovered/Resolved]
  - Blood bicarbonate decreased [Recovered/Resolved]
  - Blood potassium decreased [Recovered/Resolved]
  - pH body fluid decreased [Recovered/Resolved]
